FAERS Safety Report 6882825-6 (Version None)
Quarter: 2010Q3

REPORT INFORMATION
  Report Type: 
  Country: None (occurrence: None)
  Receive Date: 20100729
  Receipt Date: 20100723
  Transmission Date: 20110219
  Serious: Yes (Other)
  Sender: FDA-Public Use
  Company Number: CZ-AMGEN-QUU424498

PATIENT
  Age: 21 Year
  Sex: Female
  Weight: 72 kg

DRUGS (7)
  1. NEULASTA [Suspect]
     Indication: CHEMOTHERAPY
     Route: 058
     Dates: start: 20100624
  2. CYCLOPHOSPHAMIDE [Suspect]
     Indication: CHEMOTHERAPY
     Route: 042
     Dates: start: 20100621, end: 20100621
  3. DOXORUBICIN HYDROCHLORIDE [Suspect]
     Indication: CHEMOTHERAPY
     Route: 042
     Dates: start: 20100621, end: 20100621
  4. ETOPOSIDE [Suspect]
     Indication: CHEMOTHERAPY
     Route: 042
     Dates: start: 20100621, end: 20100623
  5. PROCARBAZINE HYDROCHLORIDE [Suspect]
     Indication: CHEMOTHERAPY
     Route: 048
     Dates: start: 20100621, end: 20100627
  6. VINCRISTINE [Suspect]
     Indication: CHEMOTHERAPY
     Route: 042
     Dates: start: 20100628, end: 20100628
  7. BLEOMYCIN [Suspect]
     Indication: CHEMOTHERAPY
     Route: 042
     Dates: start: 20100628, end: 20100628

REACTIONS (5)
  - BONE PAIN [None]
  - LEUKOCYTOSIS [None]
  - NEUTROPENIA [None]
  - OROPHARYNGEAL PAIN [None]
  - THROMBOCYTOPENIA [None]
